FAERS Safety Report 4907020-9 (Version None)
Quarter: 2006Q1

REPORT INFORMATION
  Report Type: 
  Country: None (occurrence: None)
  Receive Date: 20060206
  Receipt Date: 20060124
  Transmission Date: 20060701
  Serious: Yes (Hospitalization)
  Sender: FDA-Public Use
  Company Number: 200610509BWH

PATIENT
  Age: 70 Year

DRUGS (2)
  1. SORAFENIB [Suspect]
     Indication: METASTATIC MALIGNANT MELANOMA
     Dosage: 400 MG, BID, ORAL
     Route: 048
     Dates: start: 20051117, end: 20051216
  2. TEMOZOLOMIDE [Suspect]
     Dosage: 75 MG/M2, TOTAL DAILY
     Dates: start: 20051124, end: 20051216

REACTIONS (2)
  - GASTROINTESTINAL PERFORATION [None]
  - VOMITING [None]
